FAERS Safety Report 24073787 (Version 1)
Quarter: 2024Q3

REPORT INFORMATION
  Report Type: Spontaneous
  Country: HN (occurrence: HN)
  Receive Date: 20240710
  Receipt Date: 20240710
  Transmission Date: 20241016
  Serious: Yes (Death, Hospitalization)
  Sender: DAIICHI
  Company Number: HN-DSJP-DSE-2024-126974

PATIENT
  Age: 77 Year
  Sex: Male

DRUGS (3)
  1. EDOXABAN TOSYLATE [Suspect]
     Active Substance: EDOXABAN TOSYLATE
     Indication: Cerebrovascular accident prophylaxis
     Dosage: 60 MG, QD (Q24H)
     Route: 048
     Dates: start: 202404, end: 2024
  2. EDOXABAN TOSYLATE [Suspect]
     Active Substance: EDOXABAN TOSYLATE
     Dosage: 60 MG, QD (Q24H)
     Route: 048
     Dates: start: 2024, end: 2024
  3. EDOXABAN TOSYLATE [Suspect]
     Active Substance: EDOXABAN TOSYLATE
     Dosage: 30 MG, QD (Q24H)
     Route: 048
     Dates: start: 2024, end: 20240614

REACTIONS (3)
  - Death [Fatal]
  - Procedural haemorrhage [Recovered/Resolved]
  - Blood urine [Recovered/Resolved]

NARRATIVE: CASE EVENT DATE: 20240101
